FAERS Safety Report 4744611-2 (Version None)
Quarter: 2005Q3

REPORT INFORMATION
  Report Type: 
  Country: None (occurrence: None)
  Receive Date: 20050809
  Receipt Date: 20040806
  Transmission Date: 20060218
  Serious: Yes (Death, Life-Threatening)
  Sender: FDA-Public Use
  Company Number: 04R-163-0271463-00

PATIENT
  Age: 5 Day
  Sex: Female
  Weight: 0.444 kg

DRUGS (1)
  1. SURVANTA [Suspect]
     Indication: RESPIRATORY DISTRESS
     Dates: start: 20021205, end: 20021206

REACTIONS (2)
  - DEATH [None]
  - PNEUMOTHORAX [None]
